FAERS Safety Report 13176629 (Version 2)
Quarter: 2017Q2

REPORT INFORMATION
  Report Type: Spontaneous
  Country: US (occurrence: US)
  Receive Date: 20170201
  Receipt Date: 20170525
  Transmission Date: 20170830
  Serious: Yes (Other)
  Sender: FDA-Public Use
  Company Number: US-SA-2017SA015804

PATIENT
  Age: 80 Year
  Sex: Female

DRUGS (15)
  1. QVAR [Concomitant]
     Active Substance: BECLOMETHASONE DIPROPIONATE
  2. AZELASTINE [Concomitant]
     Active Substance: AZELASTINE
     Dosage: NASAL SPRAY
     Route: 045
  3. LISINOPRIL. [Concomitant]
     Active Substance: LISINOPRIL
     Dates: end: 20161123
  4. ASPIRIN. [Concomitant]
     Active Substance: ASPIRIN
  5. ATENOLOL. [Concomitant]
     Active Substance: ATENOLOL
  6. COLACE [Concomitant]
     Active Substance: DOCUSATE SODIUM
  7. WELCHOL [Concomitant]
     Active Substance: COLESEVELAM HYDROCHLORIDE
  8. SERTRALINE [Concomitant]
     Active Substance: SERTRALINE HYDROCHLORIDE
  9. PRALUENT [Suspect]
     Active Substance: ALIROCUMAB
     Indication: HYPERCHOLESTEROLAEMIA
     Route: 065
     Dates: start: 201609, end: 20161107
  10. ALIROCUMAB PREFILLED PEN [Concomitant]
     Active Substance: ALIROCUMAB
     Indication: HYPERCHOLESTEROLAEMIA
     Dates: start: 201609, end: 20161107
  11. VALSARTAN. [Concomitant]
     Active Substance: VALSARTAN
     Dates: start: 20161123, end: 20161209
  12. OXYBUTYNIN [Concomitant]
     Active Substance: OXYBUTYNIN
  13. CRESTOR [Concomitant]
     Active Substance: ROSUVASTATIN CALCIUM
  14. TRAVATAN [Concomitant]
     Active Substance: TRAVOPROST
  15. ZETIA [Concomitant]
     Active Substance: EZETIMIBE

REACTIONS (5)
  - Vulvovaginal swelling [Recovered/Resolved]
  - Angioedema [Recovered/Resolved]
  - Nightmare [Recovered/Resolved]
  - Night sweats [Recovered/Resolved]
  - Urticaria [Recovered/Resolved]

NARRATIVE: CASE EVENT DATE: 201612
